FAERS Safety Report 5955507-2 (Version None)
Quarter: 2008Q4

REPORT INFORMATION
  Report Type: 
  Country: None (occurrence: None)
  Receive Date: 20081031
  Receipt Date: 20080725
  Transmission Date: 20090506
  Serious: No
  Sender: FDA-Public Use
  Company Number: 2008PV036291

PATIENT
  Sex: Female
  Weight: 90.7194 kg

DRUGS (6)
  1. SYMLIN [Suspect]
     Indication: TYPE 2 DIABETES MELLITUS
     Dosage: 120 MCG; TID; SC
     Route: 058
     Dates: start: 20080701
  2. SYMLIN [Suspect]
     Indication: TYPE 2 DIABETES MELLITUS
     Dosage: 120 MCG; TID; SC, SC
     Route: 058
     Dates: start: 20070701, end: 20070101
  3. SYMLIN [Suspect]
     Indication: TYPE 2 DIABETES MELLITUS
     Dosage: 120 MCG; TID; SC, SC
     Route: 058
     Dates: start: 20070101, end: 20080701
  4. METFORMIN HCL [Concomitant]
  5. LANTUS [Concomitant]
  6. BYETTA [Concomitant]

REACTIONS (2)
  - NAUSEA [None]
  - VOMITING [None]
